FAERS Safety Report 7064449-3 (Version None)
Quarter: 2010Q4

REPORT INFORMATION
  Report Type: 
  Country: None (occurrence: None)
  Receive Date: 20101027
  Receipt Date: 20101018
  Transmission Date: 20110411
  Serious: Yes (Hospitalization)
  Sender: FDA-Public Use
  Company Number: CH-JNJFOC-20101004364

PATIENT
  Age: 68 Year
  Sex: Female

DRUGS (11)
  1. RISPERDAL [Suspect]
     Indication: BIPOLAR DISORDER
     Route: 048
  2. RISPERDAL [Suspect]
     Route: 048
  3. RISPERDAL [Suspect]
     Route: 048
  4. RISPERDAL [Suspect]
     Route: 048
  5. DEPAKENE [Suspect]
     Indication: BIPOLAR DISORDER
     Dosage: 300- 900 MG.
     Route: 048
  6. DEPAKENE [Suspect]
     Route: 048
  7. CALCIUM [Concomitant]
     Dosage: 1200/ 80 MG. FOR YEARS.
     Route: 048
  8. VITARUBIN [Concomitant]
     Route: 048
  9. VALVERDE [Concomitant]
     Route: 048
  10. FLAMON [Concomitant]
     Dosage: FOR YEARS.
     Route: 048
  11. ATACAND [Concomitant]
     Route: 048

REACTIONS (2)
  - IMMOBILE [None]
  - PARKINSONISM [None]
